FAERS Safety Report 18454052 (Version 1)
Quarter: 2020Q4

REPORT INFORMATION
  Report Type: Report from Study
  Country: US (occurrence: US)
  Receive Date: 20201102
  Receipt Date: 20201102
  Transmission Date: 20210114
  Serious: Yes (Death, Life-Threatening, Other)
  Sender: FDA-Public Use
  Company Number: NVSC2020US289822

PATIENT
  Age: 70 Year
  Sex: Male

DRUGS (3)
  1. KYMRIAH [Suspect]
     Active Substance: TISAGENLECLEUCEL
     Indication: DIFFUSE LARGE B-CELL LYMPHOMA
     Dosage: UNK
     Route: 042
     Dates: start: 20190930
  2. FLUDARABINE [Concomitant]
     Active Substance: FLUDARABINE PHOSPHATE
     Indication: CHEMOTHERAPY
     Dosage: UNK
     Route: 065
  3. CYCLOPHOSPHAMIDE. [Concomitant]
     Active Substance: CYCLOPHOSPHAMIDE
     Indication: CHEMOTHERAPY
     Dosage: UNK
     Route: 065

REACTIONS (18)
  - Haemoglobin decreased [Unknown]
  - Malignant neoplasm progression [Fatal]
  - Neutrophil count decreased [Unknown]
  - Platelet count decreased [Unknown]
  - Hallucination [Unknown]
  - Cytokine release syndrome [Not Recovered/Not Resolved]
  - Hypoxia [Not Recovered/Not Resolved]
  - Depressed level of consciousness [Unknown]
  - Propionibacterium infection [Unknown]
  - Haematocrit decreased [Unknown]
  - Lymphocyte count decreased [Unknown]
  - Thrombocytopenia [Not Recovered/Not Resolved]
  - Diffuse large B-cell lymphoma [Fatal]
  - Neurotoxicity [Not Recovered/Not Resolved]
  - Candida infection [Unknown]
  - Cytopenia [Unknown]
  - White blood cell count decreased [Unknown]
  - Hypotension [Not Recovered/Not Resolved]
